FAERS Safety Report 20938449 (Version 2)
Quarter: 2022Q2

REPORT INFORMATION
  Report Type: Report from Study
  Country: NL (occurrence: NL)
  Receive Date: 20220609
  Receipt Date: 20220616
  Transmission Date: 20220721
  Serious: Yes (Hospitalization)
  Sender: FDA-Public Use
  Company Number: NL-ASTELLAS-2021US020404

PATIENT
  Age: 72 Year
  Sex: Male

DRUGS (8)
  1. GILTERITINIB [Suspect]
     Active Substance: GILTERITINIB
     Indication: Acute myeloid leukaemia
     Route: 048
     Dates: start: 20210222
  2. CYTARABINE [Suspect]
     Active Substance: CYTARABINE
     Indication: Acute myeloid leukaemia
     Route: 042
     Dates: start: 20210215
  3. POSACONAZOLE [Suspect]
     Active Substance: POSACONAZOLE
     Indication: Dehydration
     Route: 065
     Dates: start: 20210531, end: 20210531
  4. METOCLOPRAMIDE [Concomitant]
     Active Substance: METOCLOPRAMIDE
     Indication: Dehydration
     Route: 065
     Dates: start: 20210403, end: 20210527
  5. VORICONAZOLE [Concomitant]
     Active Substance: VORICONAZOLE
     Indication: Dehydration
     Route: 065
     Dates: start: 20210521, end: 20210527
  6. OXAZEPAM [Concomitant]
     Active Substance: OXAZEPAM
     Indication: Dehydration
     Route: 065
     Dates: start: 20210530, end: 20210530
  7. MINERAL OIL EMULSION\PETROLATUM [Concomitant]
     Active Substance: MINERAL OIL EMULSION\PETROLATUM
     Indication: Product used for unknown indication
     Dosage: UNK UNK, UNKNOWN FREQ.
     Route: 065
     Dates: start: 20210530, end: 20210530
  8. DEXAMETHASONE;FRAMYCETIN [Concomitant]
     Indication: Product used for unknown indication
     Dosage: UNK UNK, UNKNOWN FREQ.
     Route: 065
     Dates: start: 20210530, end: 20210530

REACTIONS (1)
  - Dehydration [Recovered/Resolved]

NARRATIVE: CASE EVENT DATE: 20210530
